FAERS Safety Report 14705693 (Version 2)
Quarter: 2020Q1

REPORT INFORMATION
  Report Type: Other
  Country: DK (occurrence: DK)
  Receive Date: 20180402
  Receipt Date: 20200211
  Transmission Date: 20200409
  Serious: Yes (Disabling)
  Sender: FDA-Public Use
  Company Number: DK-CELLTRION INC.-2018DK018828

PATIENT

DRUGS (4)
  1. PREDNISOLONE. [Concomitant]
     Active Substance: PREDNISOLONE
     Indication: CROHN^S DISEASE
     Dosage: UNK
     Route: 048
     Dates: start: 201505, end: 20150713
  2. REMSIMA [Suspect]
     Active Substance: INFLIXIMAB
     Dosage: UNK
     Route: 042
     Dates: start: 20150610, end: 20170922
  3. REMSIMA [Suspect]
     Active Substance: INFLIXIMAB
     Indication: CROHN^S DISEASE
     Dosage: 330 MG AS NEEDED
     Route: 042
     Dates: start: 20150610, end: 20150610
  4. REMSIMA [Suspect]
     Active Substance: INFLIXIMAB
     Dosage: 330 MG, PRN
     Route: 042
     Dates: start: 20170922, end: 20170922

REACTIONS (5)
  - Visual impairment [Recovering/Resolving]
  - Optic neuritis [Recovering/Resolving]
  - Eye pain [Unknown]
  - Pupillary reflex impaired [Unknown]
  - Papilloedema [Unknown]

NARRATIVE: CASE EVENT DATE: 201710
